FAERS Safety Report 7758249-6 (Version None)
Quarter: 2011Q3

REPORT INFORMATION
  Report Type: 
  Country: None (occurrence: None)
  Receive Date: 20110919
  Receipt Date: 20110914
  Transmission Date: 20111222
  Serious: Yes (Death, Hospitalization, Other)
  Sender: FDA-Public Use
  Company Number: JP-BAYER-200912812BYL

PATIENT
  Age: 74 Year
  Sex: Female

DRUGS (16)
  1. LASIX [Concomitant]
     Indication: HEPATIC HYDROTHORAX
     Dosage: BEFORE NEXAVAR ADMINISTRATION
     Route: 048
  2. LASIX [Concomitant]
     Dosage: 20 MG
     Route: 048
     Dates: start: 20090813
  3. LASIX [Concomitant]
     Dosage: 40 MG (HEPATIC HYDROTHORAX)
     Route: 048
     Dates: start: 20091120
  4. METHYCOBAL [Concomitant]
     Indication: NEUROPATHY PERIPHERAL
     Dosage: BEFORE NEXAVAR ADMINISTRATION
     Route: 048
  5. LIVACT [Concomitant]
     Dosage: BEFORE NEXAVAR ADMINISTRATION
     Route: 048
     Dates: end: 20090803
  6. MUCOSTA [Concomitant]
     Indication: GASTRITIS
     Dosage: BEFORE NEXAVAR ADMINISTRATION
     Route: 048
  7. NEXAVAR [Suspect]
     Dosage: DAILY DOSE 12.45 G
     Route: 048
     Dates: start: 20090813
  8. GLAKAY [Concomitant]
     Indication: OSTEOPOROSIS
     Dosage: BEFORE NEXAVAR ADMINISTRATION
     Route: 048
  9. ALDACTONE [Concomitant]
     Dosage: 50 MG (TREATMENT, HEPATIC HYDROTHORAX)
     Dates: start: 20091120
  10. NEXAVAR [Suspect]
     Indication: HEPATIC NEOPLASM MALIGNANT
     Route: 048
     Dates: start: 20090716, end: 20090803
  11. NEXAVAR [Suspect]
     Dosage: 400 MG, QD
     Route: 048
     Dates: start: 20090903, end: 20090918
  12. URSO 250 [Concomitant]
     Dosage: BEFORE NEXAVAR ADMINISTRATION
     Route: 048
  13. FELBINAC [Concomitant]
     Indication: BACK PAIN
     Dosage: BEFORE NEXAVAR ADMINISTRATION
     Route: 062
  14. NEXAVAR [Suspect]
     Dosage: 400 MG, QD, 5 DAYS/ WEEK
     Dates: start: 20090918, end: 20091109
  15. RABEPRAZOLE SODIUM [Concomitant]
     Indication: GASTROOESOPHAGEAL REFLUX DISEASE
     Dosage: BEFORE NEXAVAR ADMINISTRATION
     Route: 048
  16. ALDACTONE [Concomitant]
     Indication: HEPATIC HYDROTHORAX
     Dosage: BEFORE NEXAVAR ADMINISTRATION
     Route: 048
     Dates: end: 20090813

REACTIONS (5)
  - HEPATIC ENCEPHALOPATHY [None]
  - PALMAR-PLANTAR ERYTHRODYSAESTHESIA SYNDROME [None]
  - HEPATIC NEOPLASM MALIGNANT [None]
  - HEPATIC FUNCTION ABNORMAL [None]
  - HEPATIC HYDROTHORAX [None]
